FAERS Safety Report 18954665 (Version 1)
Quarter: 2021Q1

REPORT INFORMATION
  Report Type: Other
  Country: US (occurrence: US)
  Receive Date: 20210301
  Receipt Date: 20210301
  Transmission Date: 20210420
  Serious: Yes (Other)
  Sender: FDA-Public Use
  Company Number: US-ROCHE-2776541

PATIENT
  Sex: Female

DRUGS (20)
  1. SPIRIVA RESPIMAT [Concomitant]
     Active Substance: TIOTROPIUM BROMIDE
     Dosage: 1 PUFF BID. EXHALE THROUGH NOSE
  2. ZYRTEC (UNITED STATES) [Concomitant]
     Dosage: 1 EACH AM AS NEEDED AND 1?2 EACH EVENING
  3. DYMISTA [Concomitant]
     Active Substance: AZELASTINE HYDROCHLORIDE\FLUTICASONE PROPIONATE
     Dosage: 2 SPRAYS/NOSTRILS QD AFTER SHOWER SALINE MIST PRIOR TO SHOWER BIN:610524 PCN:LOYALTY
  4. MUPIROCIN. [Concomitant]
     Active Substance: MUPIROCIN
     Dosage: APPLY AFFECTED AREA TWICE A DAY
  5. XOLAIR [Suspect]
     Active Substance: OMALIZUMAB
     Indication: ASTHMA
  6. XOLAIR [Suspect]
     Active Substance: OMALIZUMAB
     Indication: ASTHMA
     Dosage: INJECT 225 MG SQ EVERY 2 WEEKS
     Route: 058
  7. TOPAMAX [Concomitant]
     Active Substance: TOPIRAMATE
     Dosage: 3 TAB BID
  8. BUDESONIDE. [Concomitant]
     Active Substance: BUDESONIDE
  9. GENERESS FE [Concomitant]
     Active Substance: ETHINYL ESTRADIOL\NORETHINDRONE
  10. HYDROXYZINE HCL [Concomitant]
     Active Substance: HYDROXYZINE HYDROCHLORIDE
     Dosage: 1 TABLET AT 13 HOURS, 7 HOURS, AND 1 HOUR PRIOR TO IV CONTRAST
  11. KETOTIFEN [Concomitant]
     Active Substance: KETOTIFEN
     Dosage: AS PER MD
  12. XOLAIR [Suspect]
     Active Substance: OMALIZUMAB
     Indication: IDIOPATHIC URTICARIA
  13. ZOFRAN [Concomitant]
     Active Substance: ONDANSETRON HYDROCHLORIDE
     Dosage: PRN
  14. PROTONIX DR [Concomitant]
     Dosage: 1 HOUR PRIOR TO LARGEST MEAL OF DAY
  15. SINGULAIR [Concomitant]
     Active Substance: MONTELUKAST SODIUM
     Dosage: 1 EACH DAY
  16. XOPENEX HFA [Concomitant]
     Active Substance: LEVALBUTEROL TARTRATE
     Dosage: 2 PUFFS QID PRN OR 30 MINUTES PRIOR TO SPORTS
  17. SYNTHROID [Concomitant]
     Active Substance: LEVOTHYROXINE SODIUM
     Dosage: 1 TAB QD
  18. ADVAIR HFA [Concomitant]
     Active Substance: FLUTICASONE PROPIONATE\SALMETEROL XINAFOATE
     Dosage: 1?2 PUFFS 2X PER DAY.EXHALE THROUGH NOSE.RINSE MOUTH OUT AFTER EACH USE
  19. HYDROXYZINE HCL [Concomitant]
     Active Substance: HYDROXYZINE HYDROCHLORIDE
  20. PREDNISONE. [Concomitant]
     Active Substance: PREDNISONE
     Dosage: 2 TAB QD

REACTIONS (25)
  - Pneumonia [Unknown]
  - Gaucher^s disease [Unknown]
  - Methylmalonic aciduria [Unknown]
  - Gastrooesophageal reflux disease [Unknown]
  - Colitis [Unknown]
  - Anaphylactic reaction [Unknown]
  - Malignant mast cell neoplasm [Unknown]
  - Off label use [Unknown]
  - Chronic sinusitis [Unknown]
  - Chronic obstructive pulmonary disease [Unknown]
  - Dyspnoea [Unknown]
  - Intentional product use issue [Unknown]
  - Influenza [Unknown]
  - Anaemia vitamin B12 deficiency [Unknown]
  - Rhinitis [Unknown]
  - Haematopoietic neoplasm [Unknown]
  - Dermatitis atopic [Unknown]
  - Rhinitis allergic [Unknown]
  - Bronchitis chronic [Unknown]
  - Neoplasm [Unknown]
  - Lymphatic system neoplasm [Unknown]
  - Otitis media acute [Unknown]
  - Gastrointestinal inflammation [Unknown]
  - Mastocytosis [Unknown]
  - Headache [Unknown]
